FAERS Safety Report 22001215 (Version 1)
Quarter: 2023Q1

REPORT INFORMATION
  Report Type: Spontaneous
  Country: US (occurrence: None)
  Receive Date: 20230215
  Receipt Date: 20230215
  Transmission Date: 20230418
  Serious: No
  Sender: FDA-Public Use
  Company Number: None

PATIENT
  Age: 46 Year
  Sex: Female

DRUGS (14)
  1. EMGALITY [Suspect]
     Active Substance: GALCANEZUMAB-GNLM
     Dosage: FREQUENCY : MONTHLY;?
     Route: 058
     Dates: start: 20230209
  2. OMEGA 3 [Concomitant]
     Active Substance: CAPSAICIN
  3. VITAMIN C [Concomitant]
     Active Substance: ASCORBIC ACID
  4. ASMANEX HFA [Concomitant]
     Active Substance: MOMETASONE FUROATE
  5. IMITREX [Concomitant]
     Active Substance: SUMATRIPTAN SUCCINATE
  6. MAXALT [Concomitant]
     Active Substance: RIZATRIPTAN BENZOATE
  7. PHENERGAN [Concomitant]
     Active Substance: PROMETHAZINE HYDROCHLORIDE
  8. PROBIOTIC SOFTGEL CAPS [Concomitant]
  9. PROGESTERONE [Concomitant]
     Active Substance: PROGESTERONE
  10. THYROID (ARMOUR) [Concomitant]
  11. ULTRAM [Concomitant]
     Active Substance: TRAMADOL HYDROCHLORIDE
  12. VITAMIN B12 [Concomitant]
     Active Substance: CYANOCOBALAMIN
  13. XANAX [Concomitant]
     Active Substance: ALPRAZOLAM
  14. ZOFRAN [Concomitant]
     Active Substance: ONDANSETRON HYDROCHLORIDE

REACTIONS (3)
  - Device malfunction [None]
  - Incorrect dose administered [None]
  - Accidental exposure to product [None]

NARRATIVE: CASE EVENT DATE: 20230213
